FAERS Safety Report 7482443-5 (Version None)
Quarter: 2011Q2

REPORT INFORMATION
  Report Type: 
  Country: None (occurrence: None)
  Receive Date: 20110516
  Receipt Date: 20110503
  Transmission Date: 20111010
  Serious: Yes (Other)
  Sender: FDA-Public Use
  Company Number: US-WATSON-2011-06339

PATIENT
  Age: 71 Year
  Sex: Male

DRUGS (4)
  1. SULFAMETHOXAZOLE AND TRIMETHOPRIM [Suspect]
     Indication: PRODUCT USED FOR UNKNOWN INDICATION
     Dosage: UNK
  2. ACYCLOVIR [Suspect]
     Indication: PRODUCT USED FOR UNKNOWN INDICATION
     Dosage: UNK
  3. TREANDA [Suspect]
     Indication: PRODUCT USED FOR UNKNOWN INDICATION
     Dosage: UNK
  4. CIPROFLOXACIN HCL [Suspect]
     Indication: PRODUCT USED FOR UNKNOWN INDICATION
     Dosage: UNK

REACTIONS (2)
  - DYSPLASIA [None]
  - NEUTROPHIL PELGER-HUET ANOMALY PRESENT [None]
